FAERS Safety Report 15717219 (Version 1)
Quarter: 2018Q4

REPORT INFORMATION
  Report Type: Spontaneous
  Country: US (occurrence: US)
  Receive Date: 20181129
  Receipt Date: 20181129
  Transmission Date: 20190205
  Serious: No
  Sender: FDA-Public Use
  Company Number: None

PATIENT

DRUGS (1)
  1. MORPHINE 25MG/ML 10ML [Suspect]
     Active Substance: MORPHINE

REACTIONS (3)
  - Product outer packaging issue [None]
  - Product use complaint [None]
  - Product availability issue [None]
